FAERS Safety Report 4627431-9 (Version None)
Quarter: 2005Q2

REPORT INFORMATION
  Report Type: 
  Country: None (occurrence: None)
  Receive Date: 20050405
  Receipt Date: 20050322
  Transmission Date: 20051028
  Serious: Yes (Death)
  Sender: FDA-Public Use
  Company Number: 2005047915

PATIENT
  Sex: Male

DRUGS (3)
  1. NEURONTIN [Suspect]
     Indication: BIPOLAR DISORDER
     Dosage: 2700 MG (900 MG, 3 IN 1 D)
  2. NEURONTIN [Suspect]
     Indication: MIGRAINE
     Dosage: 2700 MG (900 MG, 3 IN 1 D)
  3. BEXTRA [Suspect]
     Indication: ILL-DEFINED DISORDER

REACTIONS (1)
  - NO ADVERSE EFFECT [None]
